FAERS Safety Report 10555049 (Version 2)
Quarter: 2014Q4

REPORT INFORMATION
  Report Type: Spontaneous
  Country: FR (occurrence: FR)
  Receive Date: 20141030
  Receipt Date: 20141104
  Transmission Date: 20150529
  Serious: No
  Sender: FDA-Public Use
  Company Number: FR-BRISTOL-MYERS SQUIBB COMPANY-21520697

PATIENT
  Age: 81 Year
  Sex: Male

DRUGS (3)
  1. KARDEGIC [Suspect]
     Active Substance: ASPIRIN LYSINE
  2. ARIXTRA [Suspect]
     Active Substance: FONDAPARINUX SODIUM
  3. ELIQUIS [Suspect]
     Active Substance: APIXABAN

REACTIONS (1)
  - Medication error [Unknown]
